FAERS Safety Report 4711078-X (Version None)
Quarter: 2005Q3

REPORT INFORMATION
  Report Type: 
  Country: None (occurrence: None)
  Receive Date: 20050707
  Receipt Date: 20050629
  Transmission Date: 20060218
  Serious: Yes (Hospitalization)
  Sender: FDA-Public Use
  Company Number: TCI2004A04471

PATIENT
  Age: 49 Year
  Sex: Female

DRUGS (7)
  1. LEUPROLIDE ACETATE [Suspect]
     Indication: MENORRHAGIA
     Dosage: 3.75 MG (3.75 MG, 1 IN 28 D) SUBCUTANEOUS
     Route: 058
     Dates: start: 20041120, end: 20050316
  2. LEUPROLIDE ACETATE [Suspect]
     Indication: UTERINE LEIOMYOMA
     Dosage: 3.75 MG (3.75 MG, 1 IN 28 D) SUBCUTANEOUS
     Route: 058
     Dates: start: 20041120, end: 20050316
  3. NORGESTREL AND ETHINYL ESTRADIOL [Suspect]
     Indication: MENORRHAGIA
     Dosage: 2 TAB. (1 TAB., 2 IN 1 D), PER ORAL
     Route: 048
     Dates: start: 20041120
  4. NORGESTREL AND ETHINYL ESTRADIOL [Suspect]
     Indication: MENORRHAGIA
     Dosage: 2 TAB. (1 TAB., 2 IN 1 D), PER ORAL
     Route: 048
     Dates: start: 20041203
  5. PLANOVAR (ETHINYL ESTRADIOL W/ NORGESTREL) [Suspect]
     Indication: MENORRHAGIA
     Dosage: 1 TAB. (1 TAB., 1 IN 1 D) PER ORAL
     Route: 048
     Dates: start: 20041201, end: 20041202
  6. FERROMIA          (FERROUS CITRATE) [Concomitant]
  7. CINAL               (CINAL) [Concomitant]

REACTIONS (4)
  - ARTERIAL THROMBOSIS LIMB [None]
  - DRUG INEFFECTIVE [None]
  - INSOMNIA [None]
  - MENORRHAGIA [None]
